FAERS Safety Report 9952407 (Version 1)
Quarter: 2014Q1

REPORT INFORMATION
  Report Type: Report from Study
  Country: US (occurrence: US)
  Receive Date: 20140304
  Receipt Date: 20140304
  Transmission Date: 20141002
  Serious: No
  Sender: FDA-Public Use
  Company Number: US-ABBVIE-13P-163-1080086-00

PATIENT
  Age: 59 Year
  Sex: Male

DRUGS (4)
  1. HUMIRA [Suspect]
     Indication: CROHN^S DISEASE
     Route: 058
     Dates: start: 20130121
  2. AMLODIPINE [Concomitant]
     Indication: HYPERTENSION
     Dosage: 10 MG DAILY
  3. ASA [Concomitant]
     Indication: PAIN
     Dosage: 81 MG DAILY OR AS REQUIRED
  4. ASA [Concomitant]
     Indication: ACCIDENT AT WORK

REACTIONS (1)
  - Rectal haemorrhage [Recovered/Resolved]
